FAERS Safety Report 16816150 (Version 1)
Quarter: 2019Q4

REPORT INFORMATION
  Report Type: Spontaneous
  Country: US (occurrence: US)
  Receive Date: 20190917
  Receipt Date: 20190917
  Transmission Date: 20200122
  Serious: Yes (Disabling)
  Sender: FDA-Public Use
  Company Number: None

PATIENT
  Age: 6 Year
  Sex: Male
  Weight: 21.6 kg

DRUGS (6)
  1. TUMS [Suspect]
     Active Substance: CALCIUM CARBONATE
     Indication: DYSPEPSIA
     Dates: start: 20120901, end: 20130321
  2. OMEGA 3 [Concomitant]
     Active Substance: OMEGA-3 FATTY ACIDS
  3. ZANTAC [Suspect]
     Active Substance: RANITIDINE HYDROCHLORIDE
     Indication: DYSPEPSIA
     Dates: start: 20120901, end: 20130321
  4. MOTRIN [Concomitant]
     Active Substance: IBUPROFEN
  5. ANTIBIOTICS [Concomitant]
     Active Substance: UNSPECIFIED INGREDIENT
  6. PRE-BIOTIC FIBER [Concomitant]

REACTIONS (5)
  - Immune system disorder [None]
  - Exposure to toxic agent [None]
  - Maternal drugs affecting foetus [None]
  - Foetal exposure during pregnancy [None]
  - Nervous system disorder [None]

NARRATIVE: CASE EVENT DATE: 20190310
